FAERS Safety Report 4346441-2 (Version None)
Quarter: 2004Q2

REPORT INFORMATION
  Report Type: 
  Country: None (occurrence: None)
  Receive Date: 20040426
  Receipt Date: 20030130
  Transmission Date: 20050107
  Serious: Yes (Life-Threatening, Hospitalization)
  Sender: FDA-Public Use
  Company Number: US-BRISTOL-MYERS SQUIBB COMPANY-12171823

PATIENT
  Age: 62 Year
  Sex: Female

DRUGS (7)
  1. CARBOPLATIN [Suspect]
     Indication: OVARIAN CANCER
     Dosage: EVENT OCCURRED AT START OF 6TH DOSE
     Route: 042
     Dates: start: 20030127, end: 20030127
  2. TAXOL [Concomitant]
  3. KYTRIL [Concomitant]
     Route: 042
  4. DECADRON [Concomitant]
     Route: 042
  5. BENADRYL [Concomitant]
     Route: 042
  6. TAGAMET [Concomitant]
  7. ETHYOL [Concomitant]

REACTIONS (1)
  - ANAPHYLACTIC REACTION [None]
